FAERS Safety Report 9302205 (Version 1)
Quarter: 2013Q2

REPORT INFORMATION
  Report Type: Spontaneous
  Country: FR (occurrence: FR)
  Receive Date: 20130522
  Receipt Date: 20130522
  Transmission Date: 20140414
  Serious: Yes (Hospitalization)
  Sender: FDA-Public Use
  Company Number: FR-B.I. PHARMACEUTICALS,INC./RIDGEFIELD-2013-FF-01435FF

PATIENT
  Age: 50 Year
  Sex: Female

DRUGS (6)
  1. PRADAXA [Suspect]
     Indication: ATRIAL FIBRILLATION
     Dosage: 300 MG
     Route: 048
     Dates: end: 201305
  2. METFORMINE [Concomitant]
  3. COVERSYL [Concomitant]
  4. METOPROLOL [Concomitant]
  5. LASILIX [Concomitant]
  6. DAFALGAN [Concomitant]

REACTIONS (2)
  - Transient ischaemic attack [Unknown]
  - Atrial thrombosis [Unknown]
